FAERS Safety Report 5771967-4 (Version None)
Quarter: 2008Q2

REPORT INFORMATION
  Report Type: 
  Country: None (occurrence: None)
  Receive Date: 20080611
  Receipt Date: 20080605
  Transmission Date: 20081010
  Serious: Yes (Congenital Anomaly)
  Sender: FDA-Public Use
  Company Number: 2008SP010365

PATIENT
  Sex: Male
  Weight: 2.55 kg

DRUGS (8)
  1. VIRAFERONPEG [Suspect]
     Indication: HEPATITIS C
     Dosage: TRPL
     Route: 064
     Dates: end: 20070723
  2. COPEGUS [Suspect]
     Indication: HEPATITIS C
     Dosage: TRPL
     Route: 064
     Dates: end: 20070723
  3. DEPAKENE [Suspect]
     Indication: EPILEPSY
     Dosage: TRPL
     Route: 064
     Dates: end: 20070723
  4. PAROXETINE HYDROCHLORIDE [Suspect]
     Indication: DRUG USE FOR UNKNOWN INDICATION
     Dosage: TRPL
     Route: 064
     Dates: end: 20070723
  5. LAMICTAL [Suspect]
     Indication: EPILEPSY
     Dosage: TRPL
     Route: 064
  6. LEVOTHYROXINE SODIUM [Concomitant]
  7. ACETAMINOPHEN [Concomitant]
  8. CYSTINE B6 [Concomitant]

REACTIONS (3)
  - HYPOTELORISM OF ORBIT [None]
  - MATERNAL DRUGS AFFECTING FOETUS [None]
  - SKULL MALFORMATION [None]
